FAERS Safety Report 4405564-X (Version None)
Quarter: 2004Q3

REPORT INFORMATION
  Report Type: 
  Country: None (occurrence: None)
  Receive Date: 20040723
  Receipt Date: 20030930
  Transmission Date: 20050211
  Serious: No
  Sender: FDA-Public Use
  Company Number: US-GLAXOSMITHKLINE-A0428038A

PATIENT
  Age: 73 Year
  Sex: Female

DRUGS (6)
  1. AVANDIA [Suspect]
     Dosage: 2MG PER DAY
     Route: 048
  2. PLAVIX [Concomitant]
  3. AMITRIPTYLINE HCL [Concomitant]
  4. LEVOXYL [Concomitant]
  5. TOPROL-XL [Concomitant]
  6. PREMARIN [Concomitant]

REACTIONS (5)
  - HEADACHE [None]
  - PAIN [None]
  - PALPITATIONS [None]
  - PARAESTHESIA [None]
  - PERIPHERAL COLDNESS [None]
